FAERS Safety Report 8402939-9 (Version None)
Quarter: 2012Q2

REPORT INFORMATION
  Report Type: 
  Country: None (occurrence: None)
  Receive Date: 20120601
  Receipt Date: 20120529
  Transmission Date: 20120825
  Serious: Yes (Hospitalization)
  Sender: FDA-Public Use
  Company Number: US-GLAXOSMITHKLINE-A0979564A

PATIENT
  Age: 57 Year
  Sex: Female

DRUGS (2)
  1. FLOLAN [Suspect]
     Indication: PRODUCT USED FOR UNKNOWN INDICATION
     Dosage: 2NGKM CONTINUOUS
     Route: 042
     Dates: start: 20120321
  2. REVATIO [Concomitant]

REACTIONS (1)
  - FLUID OVERLOAD [None]
